FAERS Safety Report 24075737 (Version 2)
Quarter: 2024Q3

REPORT INFORMATION
  Report Type: Spontaneous
  Country: IT (occurrence: IT)
  Receive Date: 20240710
  Receipt Date: 20240828
  Transmission Date: 20241016
  Serious: Yes (Hospitalization)
  Sender: EISAI
  Company Number: None

PATIENT
  Age: 86 Year
  Sex: Male
  Weight: 75 kg

DRUGS (6)
  1. DONEPEZIL [Suspect]
     Active Substance: DONEPEZIL\DONEPEZIL HYDROCHLORIDE
     Indication: Dementia Alzheimer^s type
     Route: 048
     Dates: start: 202311, end: 2024
  2. AMLODIPINE BESYLATE [Concomitant]
     Active Substance: AMLODIPINE BESYLATE
     Indication: Product used for unknown indication
     Dosage: UNKNOWN DOSE AND FREQUENCY
  3. CALCIJEX [Concomitant]
     Active Substance: CALCITRIOL
     Indication: Product used for unknown indication
     Dosage: UNKNOWN DOSE AND FREQUENCY
  4. ATORVASTATIN [Concomitant]
     Active Substance: ATORVASTATIN
     Indication: Product used for unknown indication
     Dosage: UNKNOWN DOSE AND FREQUENCY
  5. FUROSEMIDE SODIUM [Concomitant]
     Active Substance: FUROSEMIDE SODIUM
     Indication: Product used for unknown indication
     Dosage: UNKNOWN DOSE AND FREQUENCY
  6. MEMANTINE [Concomitant]
     Active Substance: MEMANTINE
     Indication: Product used for unknown indication
     Dosage: UNKNOWN DOSE AND FREQUENCY

REACTIONS (1)
  - Sinus bradycardia [Recovered/Resolved]

NARRATIVE: CASE EVENT DATE: 20240614
